FAERS Safety Report 9579551 (Version 1)
Quarter: 2013Q4

REPORT INFORMATION
  Report Type: Spontaneous
  Country: US (occurrence: US)
  Receive Date: 20131001
  Receipt Date: 20131001
  Transmission Date: 20140711
  Serious: No
  Sender: FDA-Public Use
  Company Number: US-AMGEN-USASP2013030623

PATIENT
  Age: 61 Year
  Sex: Male

DRUGS (17)
  1. EPOGEN [Suspect]
     Indication: RENAL FAILURE CHRONIC
     Dosage: 30000 UNIT, QWK
     Route: 058
  2. ALLOPURINOL [Concomitant]
     Dosage: UNK
  3. AMLODIPINE [Concomitant]
     Dosage: UNK
  4. LOPID [Concomitant]
     Dosage: UNK
  5. HUMULIN [Concomitant]
     Dosage: UNK
  6. HYDRALAZINE [Concomitant]
     Dosage: UNK
  7. ISTALOL [Concomitant]
     Dosage: UNK
  8. LANTUS [Concomitant]
     Dosage: UNK
  9. LASIX                              /00032601/ [Concomitant]
     Dosage: UNK
  10. PROTEIN SUPPLEMENTS [Concomitant]
     Dosage: UNK
  11. METOPROLOL [Concomitant]
     Dosage: UNK
  12. PHOSLO [Concomitant]
     Dosage: UNK
  13. RENVELA [Concomitant]
     Dosage: UNK
  14. SODIUM BICARBONATE [Concomitant]
     Dosage: UNK
  15. VENOFER [Concomitant]
     Dosage: UNK
     Route: 042
  16. VITAMIN D3 [Concomitant]
     Dosage: UNK
  17. XALATAN [Concomitant]
     Dosage: UNK

REACTIONS (2)
  - Haemoglobin decreased [Unknown]
  - Type 2 diabetes mellitus [Unknown]
